FAERS Safety Report 24704660 (Version 1)
Quarter: 2024Q4

REPORT INFORMATION
  Report Type: Report from Study
  Country: IE (occurrence: IE)
  Receive Date: 20241206
  Receipt Date: 20241206
  Transmission Date: 20250114
  Serious: Yes (Other)
  Sender: ROCHE
  Company Number: IE-ROCHE-10000146014

PATIENT
  Sex: Female

DRUGS (1)
  1. OCREVUS [Suspect]
     Active Substance: OCRELIZUMAB
     Indication: Inflammation
     Dosage: 2 VIALS 300MG
     Route: 042

REACTIONS (2)
  - Nasopharyngitis [Recovering/Resolving]
  - Influenza [Recovering/Resolving]
